FAERS Safety Report 19024267 (Version 2)
Quarter: 2021Q2

REPORT INFORMATION
  Report Type: Report from Study
  Country: AU (occurrence: AU)
  Receive Date: 20210318
  Receipt Date: 20210415
  Transmission Date: 20210717
  Serious: Yes (Hospitalization)
  Sender: FDA-Public Use
  Company Number: AU-BEIGENE AUS PTY LTD-BEIGENE-2017-000403

PATIENT

DRUGS (20)
  1. DOXYCYCLINE. [Concomitant]
     Active Substance: DOXYCYCLINE
     Indication: PNEUMONIA
     Dosage: 200 MILLIGRAM, QD
     Route: 048
     Dates: start: 20170811, end: 20170811
  2. FLIXOTIDE [Concomitant]
     Active Substance: FLUTICASONE PROPIONATE
     Indication: PERTUSSIS
     Dosage: 500 MILLIGRAM, QD
     Route: 055
     Dates: start: 20170718
  3. DOXYCYCLINE. [Concomitant]
     Active Substance: DOXYCYCLINE
     Dosage: LONG TERM, 50 MG, BID
     Route: 048
     Dates: start: 2013
  4. CEPHALEXIN                         /00145501/ [Concomitant]
     Active Substance: CEPHALEXIN
     Indication: COUGH
     Dosage: 500 MILLIGRAM, QID
     Route: 048
     Dates: start: 20170801, end: 20170831
  5. BGB?3111 [Suspect]
     Active Substance: ZANUBRUTINIB
     Dosage: 160 MG, BID
     Route: 048
     Dates: start: 20170830
  6. CLOPIDOGREL [Concomitant]
     Active Substance: CLOPIDOGREL BISULFATE
     Indication: MYOCARDIAL ISCHAEMIA
     Dosage: 75 MILLIGRAM, QD MANE
     Route: 048
     Dates: start: 2006
  7. ASPIRIN                            /00002701/ [Concomitant]
     Active Substance: ASPIRIN
     Indication: MYOCARDIAL ISCHAEMIA
     Dosage: 100 MILLIGRAM, QD MANE
     Route: 048
     Dates: start: 2006
  8. LANTUS [Concomitant]
     Active Substance: INSULIN GLARGINE
     Indication: DIABETES MELLITUS
     Dosage: 32 UNIT, BID MANE
     Route: 058
     Dates: start: 201607
  9. ISOSORBIDE MONONITRATE. [Concomitant]
     Active Substance: ISOSORBIDE MONONITRATE
     Indication: MYOCARDIAL ISCHAEMIA
     Dosage: 60 MILLIGRAM, QD
     Route: 048
     Dates: start: 20160615
  10. BGB?3111 [Suspect]
     Active Substance: ZANUBRUTINIB
     Dosage: 160 MG, BID
     Route: 048
     Dates: start: 20160503, end: 20170811
  11. ATORVASTATIN [Concomitant]
     Active Substance: ATORVASTATIN
     Indication: HYPERCHOLESTEROLAEMIA
     Dosage: 40 MILLIGRAM, QHS
     Route: 048
     Dates: start: 2006
  12. METOPROLOL. [Concomitant]
     Active Substance: METOPROLOL
     Indication: HYPERTENSION
     Dosage: 50 MILLIGRAM, BID
     Route: 048
     Dates: start: 2007
  13. HUMALOG [Concomitant]
     Active Substance: INSULIN LISPRO
     Indication: DIABETES MELLITUS
     Dosage: 10 UNIT, TID
     Route: 058
     Dates: start: 1992
  14. CEPHALEXIN                         /00145501/ [Concomitant]
     Active Substance: CEPHALEXIN
     Indication: DIABETIC ULCER
     Dosage: 500 MILLIGRAM, BID
     Route: 048
     Dates: start: 20170801, end: 20170831
  15. BGB?3111 [Suspect]
     Active Substance: ZANUBRUTINIB
     Indication: CHRONIC LYMPHOCYTIC LEUKAEMIA
     Dosage: 160 MG, BID
     Route: 048
     Dates: start: 20151209, end: 20160426
  16. COVERAM [Concomitant]
     Active Substance: AMLODIPINE\PERINDOPRIL
     Indication: HYPERTENSION
     Dosage: 1 TAB, QD MANE
     Route: 048
     Dates: start: 2003
  17. GLYCERYL TRINITRATE [Concomitant]
     Active Substance: NITROGLYCERIN
     Indication: ANGINA PECTORIS
     Dosage: 400 MICROGRAM, PRN
     Route: 065
     Dates: start: 201501
  18. LANTUS [Concomitant]
     Active Substance: INSULIN GLARGINE
     Dosage: 10 UNIT, QHS NOCTE
     Route: 058
     Dates: start: 201607
  19. DOXYCYCLINE. [Concomitant]
     Active Substance: DOXYCYCLINE
     Indication: BRONCHITIS
     Dosage: 100 MILLIGRAM, QD
     Route: 048
     Dates: start: 20170813, end: 20170818
  20. DOXYCYCLINE. [Concomitant]
     Active Substance: DOXYCYCLINE
     Dosage: 100 MILLIGRAM, QD
     Route: 048
     Dates: start: 20170901

REACTIONS (2)
  - Neutropenia [Recovered/Resolved]
  - Pneumonia [Recovered/Resolved with Sequelae]

NARRATIVE: CASE EVENT DATE: 20170731
